FAERS Safety Report 7757157-4 (Version None)
Quarter: 2011Q3

REPORT INFORMATION
  Report Type: 
  Country: None (occurrence: None)
  Receive Date: 20110916
  Receipt Date: 20110902
  Transmission Date: 20111222
  Serious: Yes (Other)
  Sender: FDA-Public Use
  Company Number: GB-ARROW GEN-2011-14165

PATIENT
  Age: 76 Year
  Sex: Male

DRUGS (17)
  1. FINASTERIDE [Suspect]
     Dosage: 5 MG, UNKNOWN
     Route: 048
     Dates: start: 20100616
  2. FINASTERIDE [Suspect]
     Dosage: 5 MG, UNKNOWN
     Route: 048
     Dates: start: 20100323
  3. FINASTERIDE [Suspect]
     Dosage: 5 MG, UNKNOWN
     Route: 048
     Dates: start: 20100414
  4. FINASTERIDE [Suspect]
     Dosage: 5 MG, UNKNOWN
     Route: 048
     Dates: start: 20100219
  5. SIMVASTATIN [Suspect]
     Indication: PRODUCT USED FOR UNKNOWN INDICATION
     Dosage: 40 MG, DAILY
     Route: 065
     Dates: start: 20110704
  6. FINASTERIDE [Suspect]
     Dosage: 5 MG, UNKNOWN
     Route: 048
     Dates: start: 20100119
  7. FINASTERIDE [Suspect]
     Dosage: 5 MG, UNKNOWN
     Route: 048
     Dates: start: 20100519
  8. FINASTERIDE [Suspect]
     Dosage: 5 MG, UNKNOWN
     Route: 048
     Dates: start: 20091229
  9. LOSARTAN POTASSIUM [Suspect]
     Indication: PRODUCT USED FOR UNKNOWN INDICATION
     Dosage: 100 MG, DAILY
     Route: 065
     Dates: start: 20110713
  10. FLECAINIDE ACETATE [Concomitant]
     Indication: PRODUCT USED FOR UNKNOWN INDICATION
     Dosage: 50 MG, BID
     Route: 065
     Dates: start: 20110704
  11. TAMSULOSIN HCL [Suspect]
     Indication: PRODUCT USED FOR UNKNOWN INDICATION
     Dosage: UNK
     Route: 065
  12. CANDESARTAN CILEXETIL [Suspect]
     Indication: PRODUCT USED FOR UNKNOWN INDICATION
     Dosage: UNK
     Route: 065
  13. FINASTERIDE [Suspect]
     Dosage: 5 MG, UNKNOWN
     Route: 048
     Dates: start: 20091127
  14. FINASTERIDE [Suspect]
     Indication: PRODUCT USED FOR UNKNOWN INDICATION
     Dosage: 5 MG, UNKNOWN
     Route: 048
     Dates: start: 20110810
  15. SENNA                              /00142201/ [Suspect]
     Indication: PRODUCT USED FOR UNKNOWN INDICATION
     Dosage: 7.5 MG, UNKNOWN
  16. BETA BLOCKING AGENTS [Suspect]
     Indication: PRODUCT USED FOR UNKNOWN INDICATION
     Dosage: UNK
     Route: 065
  17. ASPIRIN [Suspect]
     Indication: PRODUCT USED FOR UNKNOWN INDICATION
     Dosage: 75 MG, UNKNOWN
     Route: 065
     Dates: start: 20110517

REACTIONS (3)
  - VENTRICULAR EXTRASYSTOLES [None]
  - LOSS OF CONSCIOUSNESS [None]
  - HAEMATURIA [None]
